FAERS Safety Report 7382913-4 (Version None)
Quarter: 2011Q1

REPORT INFORMATION
  Report Type: 
  Country: None (occurrence: None)
  Receive Date: 20110330
  Receipt Date: 20110321
  Transmission Date: 20110831
  Serious: Yes (Life-Threatening, Hospitalization)
  Sender: FDA-Public Use
  Company Number: FR-CELGENEUS-056-21880-11032490

PATIENT
  Sex: Male

DRUGS (6)
  1. DIANTALVIC [Concomitant]
     Route: 048
  2. ASPEGIC 325 [Concomitant]
     Dosage: 100 MILLIGRAM
     Route: 048
  3. CLASTOBAN [Concomitant]
     Dosage: 800 MILLIGRAM
     Route: 048
  4. REVLIMID [Suspect]
     Indication: MULTIPLE MYELOMA
     Dosage: 10 MILLIGRAM
     Route: 048
     Dates: start: 20100921, end: 20110103
  5. ARANESP [Suspect]
     Dosage: 21.4286 MICROGRAM
     Route: 058
     Dates: start: 20101215
  6. MEDROL [Suspect]
     Dosage: .1429 DOSAGE FORMS
     Route: 048
     Dates: start: 20100921

REACTIONS (1)
  - ACUTE CORONARY SYNDROME [None]
